FAERS Safety Report 8962280 (Version 2)
Quarter: 2012Q4

REPORT INFORMATION
  Report Type: 
  Country: JP (occurrence: JP)
  Receive Date: 20121212
  Receipt Date: 20121227
  Transmission Date: 20130627
  Serious: Yes (Death, Other)
  Sender: FDA-Public Use
  Company Number: JP-CUBIST PHARMACEUTICAL, INC.-2012S1000937

PATIENT

DRUGS (3)
  1. CUBICIN [Suspect]
     Indication: DEVICE RELATED INFECTION
     Dosage: 420 mg, qod
     Route: 041
     Dates: start: 20121021, end: 20121025
  2. CUBICIN [Suspect]
     Indication: OFF LABEL USE
  3. ZOSYN [Suspect]
     Indication: DEVICE RELATED INFECTION
     Dosage: 4.5 g, qd
     Route: 065
     Dates: start: 20121020, end: 20121025

REACTIONS (1)
  - Hepatic function abnormal [Recovering/Resolving]
